FAERS Safety Report 11557583 (Version 1)
Quarter: 2015Q3

REPORT INFORMATION
  Report Type: Spontaneous
  Country: GB (occurrence: GB)
  Receive Date: 20150926
  Receipt Date: 20150926
  Transmission Date: 20151125
  Serious: Yes (Other)
  Sender: FDA-Public Use
  Company Number: GB-JNJFOC-20150912123

PATIENT
  Age: 33 Year
  Sex: Male

DRUGS (4)
  1. REGAINE [Suspect]
     Active Substance: MINOXIDIL
     Route: 061
  2. DIAZEPAM. [Concomitant]
     Active Substance: DIAZEPAM
     Indication: ANXIETY
     Dosage: TAKE ONE OR TWO AS NEEDED UP TO MAXIMUM 6 IN 24 HOURS.
     Route: 065
     Dates: start: 20150707, end: 20150721
  3. FLUOXETINE [Concomitant]
     Active Substance: FLUOXETINE\FLUOXETINE HYDROCHLORIDE
     Indication: PRODUCT USED FOR UNKNOWN INDICATION
     Route: 065
     Dates: start: 20150609
  4. REGAINE [Suspect]
     Active Substance: MINOXIDIL
     Indication: PRODUCT USED FOR UNKNOWN INDICATION
     Route: 061
     Dates: start: 20150526, end: 20150824

REACTIONS (3)
  - Depression [Recovering/Resolving]
  - Fatigue [Recovered/Resolved]
  - Depressed mood [Recovered/Resolved]

NARRATIVE: CASE EVENT DATE: 20150601
